FAERS Safety Report 7394077-1 (Version None)
Quarter: 2011Q2

REPORT INFORMATION
  Report Type: 
  Country: None (occurrence: None)
  Receive Date: 20110405
  Receipt Date: 20110331
  Transmission Date: 20111010
  Serious: Yes (Life-Threatening, Hospitalization)
  Sender: FDA-Public Use
  Company Number: FR-BRISTOL-MYERS SQUIBB COMPANY-15594575

PATIENT
  Age: 42 Year
  Sex: Male

DRUGS (3)
  1. SUBUTEX [Concomitant]
  2. VALIUM [Concomitant]
  3. COUMADIN [Suspect]
     Indication: THROMBOPHLEBITIS
     Route: 048
     Dates: start: 20050101

REACTIONS (2)
  - SUBDURAL HAEMATOMA [None]
  - ROAD TRAFFIC ACCIDENT [None]
